FAERS Safety Report 24358103 (Version 3)
Quarter: 2025Q1

REPORT INFORMATION
  Report Type: Report from Study
  Country: IN (occurrence: IN)
  Receive Date: 20240924
  Receipt Date: 20250331
  Transmission Date: 20250408
  Serious: Yes (Hospitalization, Other)
  Sender: NOVARTIS
  Company Number: IN-002147023-NVSC2022IN076570

PATIENT
  Age: 59 Year
  Sex: Male

DRUGS (2)
  1. TASIGNA [Suspect]
     Active Substance: NILOTINIB
     Indication: Chronic myeloid leukaemia
     Dosage: 300 MG, BID
     Route: 048
     Dates: start: 20210910, end: 20220328
  2. TASIGNA [Suspect]
     Active Substance: NILOTINIB
     Dosage: 300 MG, BID
     Route: 048

REACTIONS (5)
  - Vertigo [Unknown]
  - Coronary artery disease [Unknown]
  - Urethral stenosis [Unknown]
  - Dilated cardiomyopathy [Unknown]
  - Malaise [Unknown]

NARRATIVE: CASE EVENT DATE: 20220328
